FAERS Safety Report 8392743-2 (Version None)
Quarter: 2012Q2

REPORT INFORMATION
  Report Type: 
  Country: None (occurrence: None)
  Receive Date: 20120529
  Receipt Date: 20120522
  Transmission Date: 20120825
  Serious: Yes (Other)
  Sender: FDA-Public Use
  Company Number: US-UCBSA-057869

PATIENT

DRUGS (3)
  1. VIMPAT [Suspect]
  2. CALCIUM (CHANNEL) BLOCKERS [Concomitant]
  3. BETA BLOCKERS [Concomitant]
     Dosage: HIGH DOSE

REACTIONS (1)
  - SYNCOPE [None]
